FAERS Safety Report 6873192-2 (Version None)
Quarter: 2010Q3

REPORT INFORMATION
  Report Type: 
  Country: None (occurrence: None)
  Receive Date: 20100723
  Receipt Date: 20081201
  Transmission Date: 20110219
  Serious: No
  Sender: FDA-Public Use
  Company Number: US-PFIZER INC-2008150906

PATIENT
  Age: 39 Year
  Sex: Female
  Weight: 77.11 kg

DRUGS (3)
  1. CHANTIX [Suspect]
     Indication: SMOKING CESSATION THERAPY
     Dates: start: 20081101, end: 20081130
  2. ANALGESICS [Concomitant]
     Dosage: UNK
  3. PAXIL [Concomitant]
     Dosage: UNK

REACTIONS (4)
  - ANXIETY [None]
  - CHILLS [None]
  - DIZZINESS [None]
  - SENSORY DISTURBANCE [None]
